FAERS Safety Report 15670337 (Version 1)
Quarter: 2018Q4

REPORT INFORMATION
  Report Type: Other
  Country: GB (occurrence: GB)
  Receive Date: 20181129
  Receipt Date: 20181129
  Transmission Date: 20190205
  Serious: Yes (Hospitalization, Other)
  Sender: FDA-Public Use
  Company Number: GB-MACLEODS PHARMACEUTICALS US LTD-MAC2018018766

PATIENT

DRUGS (10)
  1. CLOPIXOL [Suspect]
     Active Substance: ZUCLOPENTHIXOL
     Indication: PRODUCT USED FOR UNKNOWN INDICATION
     Dosage: 600 MILLIGRAM
     Route: 065
  2. CLOPIXOL [Suspect]
     Active Substance: ZUCLOPENTHIXOL
     Indication: SCHIZOPHRENIA
     Dosage: 500 MILLIGRAM, EVERY WEEK (DEPOT WEEKLY)
     Route: 065
     Dates: start: 201709
  3. PHOSPHATE [Concomitant]
     Active Substance: UNSPECIFIED INGREDIENT
     Indication: BLOOD PHOSPHORUS DECREASED
     Dosage: UNK
     Route: 065
  4. ARIPIPRAZOLE. [Suspect]
     Active Substance: ARIPIPRAZOLE
     Dosage: UNK
     Route: 065
  5. ARIPIPRAZOLE. [Suspect]
     Active Substance: ARIPIPRAZOLE
     Indication: PRODUCT USED FOR UNKNOWN INDICATION
     Dosage: UNK, TABLET
     Route: 048
  6. VITAMIN B12 [Concomitant]
     Active Substance: CYANOCOBALAMIN
     Indication: VITAMIN B12 DECREASED
     Dosage: UNK
     Route: 065
  7. CLOPIXOL [Suspect]
     Active Substance: ZUCLOPENTHIXOL
     Dosage: 600 MILLIGRAM
     Route: 065
  8. ARIPIPRAZOLE. [Suspect]
     Active Substance: ARIPIPRAZOLE
     Dosage: UNK, TABLET, ONCE
     Route: 048
  9. CLOPIXOL [Suspect]
     Active Substance: ZUCLOPENTHIXOL
     Dosage: 600 MILLIGRAM, EVERY WEEK, (BATCH NO: 258949 AND 2579732)
     Route: 065
     Dates: start: 201709
  10. ACICLOVIR [Concomitant]
     Active Substance: ACYCLOVIR
     Indication: ENCEPHALITIS
     Dosage: UNK
     Route: 065

REACTIONS (43)
  - Encephalitis [Unknown]
  - Anal incontinence [Unknown]
  - C-reactive protein increased [Unknown]
  - Disorientation [Unknown]
  - Blood creatinine increased [Unknown]
  - Blood creatine phosphokinase increased [Unknown]
  - Blood phosphorus decreased [Unknown]
  - Vitamin B12 decreased [Unknown]
  - Asthenia [Unknown]
  - Vomiting [Unknown]
  - Hypertonia [Unknown]
  - Body temperature [Unknown]
  - Alanine aminotransferase abnormal [Unknown]
  - Hyperhidrosis [Unknown]
  - Cognitive disorder [Recovering/Resolving]
  - C-reactive protein abnormal [Unknown]
  - Chills [Unknown]
  - Headache [Unknown]
  - Malaise [Unknown]
  - Cognitive disorder [Unknown]
  - Neuroleptic malignant syndrome [Recovering/Resolving]
  - Blood creatinine increased [Recovered/Resolved]
  - Blood creatine phosphokinase increased [Recovered/Resolved]
  - Body temperature increased [Unknown]
  - Myalgia [Unknown]
  - Abnormal behaviour [Unknown]
  - Heart rate [Unknown]
  - Aggression [Unknown]
  - Dysuria [Unknown]
  - Diarrhoea [Unknown]
  - Urine odour abnormal [Unknown]
  - Loss of personal independence in daily activities [Unknown]
  - White blood cell count abnormal [Unknown]
  - Dizziness [Unknown]
  - Blood creatine increased [Unknown]
  - Abdominal discomfort [Unknown]
  - Sinus tachycardia [Unknown]
  - Tachypnoea [Unknown]
  - White blood cell count increased [Unknown]
  - Epigastric discomfort [Unknown]
  - Arthralgia [Unknown]
  - Hospitalisation [Recovered/Resolved]
  - Heart rate increased [Unknown]
